FAERS Safety Report 8337292-2 (Version None)
Quarter: 2012Q2

REPORT INFORMATION
  Report Type: 
  Country: None (occurrence: None)
  Receive Date: 20120504
  Receipt Date: 20120428
  Transmission Date: 20120825
  Serious: Yes (Other)
  Sender: FDA-Public Use
  Company Number: US-JNJFOC-20120414392

PATIENT
  Sex: Male
  Weight: 98.88 kg

DRUGS (5)
  1. XARELTO [Suspect]
     Indication: ATRIAL FIBRILLATION
     Route: 048
     Dates: start: 20120401
  2. CELEBREX [Concomitant]
     Indication: ARTHRITIS
     Route: 048
  3. UNSPECIFIED BLOOD PRESSURE MEDS [Concomitant]
     Indication: BLOOD PRESSURE
  4. AMIODARONE HCL [Concomitant]
     Indication: ATRIAL FIBRILLATION
     Route: 048
     Dates: start: 20120401
  5. TENORMIN [Concomitant]
     Indication: BLOOD PRESSURE
     Route: 048

REACTIONS (3)
  - HAEMORRHOIDAL HAEMORRHAGE [None]
  - INCORRECT DOSE ADMINISTERED [None]
  - INAPPROPRIATE SCHEDULE OF DRUG ADMINISTRATION [None]
